FAERS Safety Report 5405089-9 (Version None)
Quarter: 2007Q3

REPORT INFORMATION
  Report Type: 
  Country: None (occurrence: None)
  Receive Date: 20070803
  Receipt Date: 20070723
  Transmission Date: 20080115
  Serious: Yes (Hospitalization)
  Sender: FDA-Public Use
  Company Number: US-ROCHE-508571

PATIENT
  Sex: Female

DRUGS (1)
  1. ACCUTANE [Suspect]
     Indication: DRUG USE FOR UNKNOWN INDICATION
     Dosage: THE PATIENT WAS DISPENSED ISOTRETINOIN 20 MG CAPSULES ON 15 JANUARY 2007, 16 FEBRUARY 2007, 09 APRI+
     Route: 065

REACTIONS (2)
  - DEPRESSION [None]
  - HALLUCINATION [None]
